FAERS Safety Report 17045320 (Version 2)
Quarter: 2019Q4

REPORT INFORMATION
  Report Type: Report from Study
  Country: US (occurrence: US)
  Receive Date: 20191118
  Receipt Date: 20191202
  Transmission Date: 20200122
  Serious: Yes (Death)
  Sender: FDA-Public Use
  Company Number: US-BAUSCH-BL-2019-061732

PATIENT
  Sex: Female

DRUGS (1)
  1. XIFAXAN [Suspect]
     Active Substance: RIFAXIMIN
     Indication: HEPATIC ENCEPHALOPATHY
     Dosage: STARTED PROBABLY AT LEAST TWO AND A HALF YEARS AGO
     Route: 048
     Dates: start: 2017

REACTIONS (2)
  - Hepatic cirrhosis [Fatal]
  - Hepatic encephalopathy [Fatal]
